FAERS Safety Report 10282080 (Version 1)
Quarter: 2014Q3

REPORT INFORMATION
  Report Type: Spontaneous
  Country: FR (occurrence: FR)
  Receive Date: 20140707
  Receipt Date: 20140707
  Transmission Date: 20150326
  Serious: Yes (Life-Threatening)
  Sender: FDA-Public Use
  Company Number: FR-ASTRAZENECA-2014SE48834

PATIENT
  Age: 59 Year
  Sex: Male

DRUGS (4)
  1. BRILIQUE [Suspect]
     Active Substance: TICAGRELOR
     Route: 048
     Dates: start: 201401
  2. CARDENSIEL [Concomitant]
     Active Substance: BISOPROLOL FUMARATE
  3. PRAVADUAL [Concomitant]
     Active Substance: ASPIRIN\PRAVASTATIN
  4. COVERSYL [Concomitant]
     Active Substance: PERINDOPRIL

REACTIONS (1)
  - Cardio-respiratory arrest [Recovered/Resolved]

NARRATIVE: CASE EVENT DATE: 20140612
